FAERS Safety Report 6607947-6 (Version None)
Quarter: 2010Q1

REPORT INFORMATION
  Report Type: 
  Country: None (occurrence: None)
  Receive Date: 20100222
  Receipt Date: 20100212
  Transmission Date: 20100710
  Serious: Yes (Death)
  Sender: FDA-Public Use
  Company Number: 2010AC000127

PATIENT

DRUGS (1)
  1. DIGOXIN [Suspect]
     Dosage: UNKNOWN;PO
     Route: 048

REACTIONS (4)
  - ECONOMIC PROBLEM [None]
  - MULTIPLE INJURIES [None]
  - PARTNER STRESS [None]
  - SURGERY [None]
